FAERS Safety Report 7507511-0 (Version None)
Quarter: 2011Q2

REPORT INFORMATION
  Report Type: 
  Country: None (occurrence: None)
  Receive Date: 20110526
  Receipt Date: 20100706
  Transmission Date: 20111010
  Serious: No
  Sender: FDA-Public Use
  Company Number: US-MYLANLABS-2010S1011986

PATIENT
  Age: 49 Year
  Sex: Female

DRUGS (3)
  1. CELEBREX [Suspect]
     Indication: ARTHRITIS
     Dates: start: 20100625
  2. ZOLPIDEM TARTRATE [Suspect]
     Indication: INSOMNIA
     Route: 048
     Dates: start: 20100201
  3. LEXAPRO [Suspect]
     Indication: ANXIETY
     Route: 048
     Dates: start: 20100625

REACTIONS (4)
  - HOT FLUSH [None]
  - HEADACHE [None]
  - HYPERHIDROSIS [None]
  - DECREASED APPETITE [None]
